FAERS Safety Report 8779359 (Version 2)
Quarter: 2012Q4

REPORT INFORMATION
  Report Type: Report from Study
  Country: US (occurrence: US)
  Receive Date: 20120911
  Receipt Date: 20120926
  Transmission Date: 20130627
  Serious: Yes (Life-Threatening, Hospitalization, Other)
  Sender: FDA-Public Use
  Company Number: US-CELGENEUS-163-21880-11100439

PATIENT
  Age: 83 Year
  Sex: Male

DRUGS (2)
  1. REVLIMID [Suspect]
     Indication: MULTIPLE MYELOMA
     Dosage: 18.75 Milligram
     Route: 048
     Dates: start: 20110530, end: 20110913
  2. HEPARIN [Concomitant]
     Indication: DRUG USE FOR UNKNOWN INDICATION
     Route: 065

REACTIONS (5)
  - Coronary artery occlusion [Recovered/Resolved]
  - Electrocardiogram abnormal [Unknown]
  - Coronary artery disease [Unknown]
  - Hypoxia [Unknown]
  - Pulmonary oedema [Unknown]
